FAERS Safety Report 14577599 (Version 1)
Quarter: 2018Q1

REPORT INFORMATION
  Report Type: Report from Study
  Country: MX (occurrence: MX)
  Receive Date: 20180227
  Receipt Date: 20180227
  Transmission Date: 20180509
  Serious: Yes (Death, Hospitalization)
  Sender: FDA-Public Use
  Company Number: MX-EMD SERONO-8095048

PATIENT
  Age: 70 Year
  Sex: Female
  Weight: 54 kg

DRUGS (1)
  1. SAIZEN [Suspect]
     Active Substance: SOMATROPIN
     Indication: OSTEOPOROSIS
     Dosage: SAIZEN LYOPHILIZED 24 IU (8MG)
     Route: 058
     Dates: start: 20131125, end: 201710

REACTIONS (2)
  - Off label use [Recovered/Resolved]
  - Pancreatic carcinoma metastatic [Fatal]

NARRATIVE: CASE EVENT DATE: 20131125
